FAERS Safety Report 6982768-3 (Version None)
Quarter: 2010Q3

REPORT INFORMATION
  Report Type: 
  Country: None (occurrence: None)
  Receive Date: 20100914
  Receipt Date: 20100309
  Transmission Date: 20110219
  Serious: Yes (Other)
  Sender: FDA-Public Use
  Company Number: US-PFIZER INC-2010031531

PATIENT

DRUGS (3)
  1. LYRICA [Suspect]
     Indication: RADICULOPATHY
     Dosage: 25 MG, 4X/DAY
     Dates: end: 20100308
  2. MS CONTIN [Concomitant]
     Dosage: UNK
  3. TOPAMAX [Concomitant]
     Dosage: UNK

REACTIONS (1)
  - PLATELET COUNT DECREASED [None]
